FAERS Safety Report 19567589 (Version 1)
Quarter: 2021Q3

REPORT INFORMATION
  Report Type: Spontaneous
  Country: US (occurrence: US)
  Receive Date: 20210714
  Receipt Date: 20210714
  Transmission Date: 20211014
  Serious: No
  Sender: FDA-Public Use
  Company Number: US-VIFOR (INTERNATIONAL) INC.-VIT-2021-05384

PATIENT
  Age: 74 Year
  Sex: Female

DRUGS (7)
  1. HYDROXYZ HCL [Concomitant]
     Active Substance: HYDROXYZINE HYDROCHLORIDE
  2. VITAMIN D3 [Concomitant]
     Active Substance: CHOLECALCIFEROL
  3. VELTASSA [Suspect]
     Active Substance: PATIROMER
     Indication: HYPERKALAEMIA
     Route: 048
  4. SEVELAMER [Concomitant]
     Active Substance: SEVELAMER
  5. METOPROL TAR [Concomitant]
  6. PROCRIT [Concomitant]
     Active Substance: ERYTHROPOIETIN
  7. SODIUM BICAR [Concomitant]

REACTIONS (3)
  - Off label use [Unknown]
  - Product dose omission issue [Unknown]
  - Hypersensitivity [Unknown]

NARRATIVE: CASE EVENT DATE: 2021
